FAERS Safety Report 26072318 (Version 2)
Quarter: 2025Q4

REPORT INFORMATION
  Report Type: Report from Study
  Country: US (occurrence: US)
  Receive Date: 20251120
  Receipt Date: 20251127
  Transmission Date: 20260117
  Serious: Yes (Hospitalization, Other)
  Sender: SERVIER
  Company Number: US-SERVIER-S25016377

PATIENT

DRUGS (3)
  1. CALASPARGASE PEGOL [Suspect]
     Active Substance: CALASPARGASE PEGOL
     Indication: Pancreatic carcinoma
     Dosage: 2000.5 U, EVERY 3 WEEKS
     Route: 042
     Dates: start: 20251013, end: 20251013
  2. COBIMETINIB [Suspect]
     Active Substance: COBIMETINIB
     Indication: Pancreatic carcinoma
     Dosage: 60 UNK, QD, DAYS 1-14 OF EACH 21-DAY CYCLE
     Route: 048
     Dates: start: 20251013, end: 2025
  3. ELIQUIS [Suspect]
     Active Substance: APIXABAN
     Indication: Pancreatic carcinoma
     Dosage: UNK
     Route: 048
     Dates: start: 2025, end: 2025

REACTIONS (4)
  - Embolic stroke [Recovering/Resolving]
  - Prothrombin time prolonged [Not Recovered/Not Resolved]
  - Blood alkaline phosphatase increased [Not Recovered/Not Resolved]
  - Blood bilirubin increased [Not Recovered/Not Resolved]

NARRATIVE: CASE EVENT DATE: 20251101
